FAERS Safety Report 16136238 (Version 1)
Quarter: 2019Q1

REPORT INFORMATION
  Report Type: Report from Study
  Country: None (occurrence: US)
  Receive Date: 20190331
  Receipt Date: 20190331
  Transmission Date: 20190418
  Serious: Yes (Hospitalization)
  Sender: FDA-Public Use
  Company Number: US-ABBVIE-19K-163-2723589-00

PATIENT
  Age: 70 Year
  Sex: Male

DRUGS (1)
  1. HUMIRA [Suspect]
     Active Substance: ADALIMUMAB
     Indication: PSORIASIS
     Route: 058

REACTIONS (9)
  - Loss of consciousness [Unknown]
  - Head injury [Unknown]
  - Diarrhoea [Unknown]
  - Fall [Unknown]
  - Psoriasis [Unknown]
  - Skin fissures [Recovering/Resolving]
  - White blood cell count abnormal [Unknown]
  - Asthenia [Unknown]
  - Cellulitis [Unknown]

NARRATIVE: CASE EVENT DATE: 201903
